FAERS Safety Report 21148385 (Version 2)
Quarter: 2022Q3

REPORT INFORMATION
  Report Type: Spontaneous
  Country: US (occurrence: US)
  Receive Date: 20220729
  Receipt Date: 20220809
  Transmission Date: 20221027
  Serious: No
  Sender: FDA-Public Use
  Company Number: US-BRISTOL-MYERS SQUIBB COMPANY-2022-072917

PATIENT
  Age: 85 Year
  Sex: Female

DRUGS (2)
  1. REVLIMID [Suspect]
     Active Substance: LENALIDOMIDE
     Indication: Plasma cell myeloma
     Route: 048
  2. REVLIMID [Suspect]
     Active Substance: LENALIDOMIDE
     Dosage: TAKE 1 CAPSULE BY MOUTH DAILY ON DAY 1-21 FOLLOWED BY 7 DAYS OFF, REPEAT
     Route: 048
     Dates: start: 20210916

REACTIONS (2)
  - Urinary tract infection [Not Recovered/Not Resolved]
  - Infection [Not Recovered/Not Resolved]
